FAERS Safety Report 9928809 (Version 1)
Quarter: 2014Q1

REPORT INFORMATION
  Report Type: Spontaneous
  Country: PT (occurrence: PT)
  Receive Date: 20140227
  Receipt Date: 20140227
  Transmission Date: 20141002
  Serious: Yes (Hospitalization)
  Sender: FDA-Public Use
  Company Number: PT-BAYER-2014-028672

PATIENT
  Age: 27 Year
  Sex: Male

DRUGS (1)
  1. MOXIFLOXACIN ORAL [Suspect]
     Indication: EAR INFECTION

REACTIONS (3)
  - Encephalitis [Recovering/Resolving]
  - Hyperglycaemia [None]
  - Off label use [None]
